FAERS Safety Report 20143119 (Version 2)
Quarter: 2022Q1

REPORT INFORMATION
  Report Type: Spontaneous
  Country: BE (occurrence: BE)
  Receive Date: 20211203
  Receipt Date: 20220112
  Transmission Date: 20220424
  Serious: Yes (Other)
  Sender: FDA-Public Use
  Company Number: None

PATIENT
  Age: 39 Year
  Sex: Female

DRUGS (5)
  1. MYCOPHENOLATE MOFETIL [Suspect]
     Active Substance: MYCOPHENOLATE MOFETIL
     Indication: Renal transplant
     Dosage: 2 GRAM PER DAY
     Route: 065
     Dates: start: 201611, end: 201902
  2. MYCOPHENOLATE MOFETIL [Suspect]
     Active Substance: MYCOPHENOLATE MOFETIL
     Dosage: 750 MILLIGRAM PER DAY
     Route: 065
     Dates: start: 201902, end: 201906
  3. MYCOPHENOLATE MOFETIL [Suspect]
     Active Substance: MYCOPHENOLATE MOFETIL
     Dosage: 500 MILLIGRAM PER DAY
     Route: 065
     Dates: start: 201906
  4. TACROLIMUS [Suspect]
     Active Substance: TACROLIMUS
     Indication: Renal transplant
     Dosage: 8 MILLIGRAM PER DAY
     Route: 065
     Dates: start: 201611
  5. METHYLPREDNISOLONE [Suspect]
     Active Substance: METHYLPREDNISOLONE
     Indication: Renal transplant
     Dosage: 4 MILLIGRAM PER DAY
     Route: 065
     Dates: start: 201611

REACTIONS (2)
  - Trichodysplasia spinulosa [Recovered/Resolved]
  - Human polyomavirus infection [Recovered/Resolved]

NARRATIVE: CASE EVENT DATE: 20170501
